FAERS Safety Report 6864108-3 (Version None)
Quarter: 2010Q3

REPORT INFORMATION
  Report Type: 
  Country: None (occurrence: None)
  Receive Date: 20100721
  Receipt Date: 20080421
  Transmission Date: 20110219
  Serious: No
  Sender: FDA-Public Use
  Company Number: US-PFIZER INC-2008023626

PATIENT
  Sex: Male

DRUGS (4)
  1. CHANTIX [Suspect]
     Indication: SMOKING CESSATION THERAPY
     Route: 048
  2. ZYRTEC [Concomitant]
  3. MONTELUKAST SODIUM [Concomitant]
  4. PEPCID [Concomitant]

REACTIONS (3)
  - AMNESIA [None]
  - BRADYPHRENIA [None]
  - FEELING ABNORMAL [None]
